FAERS Safety Report 18964711 (Version 1)
Quarter: 2021Q1

REPORT INFORMATION
  Report Type: Spontaneous
  Country: US (occurrence: US)
  Receive Date: 20210303
  Receipt Date: 20210303
  Transmission Date: 20210420
  Serious: No
  Sender: FDA-Public Use
  Company Number: US-AMNEAL PHARMACEUTICALS-2020-AMRX-00890

PATIENT
  Age: 69 Year
  Sex: Female

DRUGS (4)
  1. LEVOTHYROXINE. [Concomitant]
     Active Substance: LEVOTHYROXINE
     Indication: HYPOTHYROIDISM
     Dosage: 50 MICROGRAM, 1 /DAY (IN THE MORNING)
     Route: 065
  2. RYTARY [Suspect]
     Active Substance: CARBIDOPA\LEVODOPA
     Dosage: 8 CAPSULES, DAILY (3 CAP MORNING, 3 CAP AFTER 5 TO 6 HRS 1ST DOSE AND 2 CAP AFTER 2ND DOSE)
     Route: 048
     Dates: start: 202003
  3. RYTARY [Suspect]
     Active Substance: CARBIDOPA\LEVODOPA
     Indication: PRODUCT USED FOR UNKNOWN INDICATION
     Dosage: 3 CAPSULES, 3 /DAY
     Route: 048
  4. RYTARY [Suspect]
     Active Substance: CARBIDOPA\LEVODOPA
     Dosage: 7 CAPSULES, 1 /DAY, 3 CAP IN AM, 2 CAP AFTER 5?6 HRS 1ST DOSE, 2 CAP AFTER 5?6 HRS 2ND DOSE
     Route: 048
     Dates: start: 20200311, end: 202003

REACTIONS (2)
  - Movement disorder [Recovering/Resolving]
  - Asthenia [Recovering/Resolving]

NARRATIVE: CASE EVENT DATE: 202003
